FAERS Safety Report 10228375 (Version 1)
Quarter: 2014Q2

REPORT INFORMATION
  Report Type: Spontaneous
  Country: US (occurrence: None)
  Receive Date: 20140505
  Receipt Date: 20140505
  Transmission Date: 20141212
  Serious: No
  Sender: FDA-Public Use
  Company Number: US-014968

PATIENT
  Age: 70 Year
  Sex: Male
  Weight: 83.92 kg

DRUGS (2)
  1. PICO-SALAX (NOT SPECIFIED) [Suspect]
     Indication: BOWEL PREPARATION
     Dosage: 1ST PACK: 5PM AND SECOND PACK: NEXT DAY AT 8AM ORAL
     Route: 048
     Dates: start: 201403, end: 201403
  2. SIMVASTATIN [Concomitant]

REACTIONS (2)
  - Pain [None]
  - Drug ineffective [None]
